FAERS Safety Report 7658369-0 (Version None)
Quarter: 2011Q3

REPORT INFORMATION
  Report Type: 
  Country: None (occurrence: None)
  Receive Date: 20110805
  Receipt Date: 20110209
  Transmission Date: 20111222
  Serious: Yes (Other)
  Sender: FDA-Public Use
  Company Number: DE-JNJFOC-20110801902

PATIENT
  Sex: Male
  Weight: 83 kg

DRUGS (16)
  1. METAMIZOL [Concomitant]
     Indication: POLYMYALGIA RHEUMATICA
  2. MOVIPREP [Concomitant]
  3. SIMVASTATIN [Concomitant]
     Indication: HYPERLIPIDAEMIA
  4. CLOPIDOGREL [Concomitant]
     Indication: CORONARY ARTERY DISEASE
  5. TRAMADOL HCL [Concomitant]
     Indication: POLYMYALGIA RHEUMATICA
  6. NSAIDS [Concomitant]
     Indication: POLYMYALGIA RHEUMATICA
  7. TAPENTADOL [Suspect]
     Indication: POLYMYALGIA RHEUMATICA
     Route: 048
     Dates: start: 20110114, end: 20110121
  8. SITAGLIPTIN PHOSPHATE [Concomitant]
     Indication: DIABETES MELLITUS
     Dates: start: 20100301
  9. BELOK ZOC [Concomitant]
     Indication: CORONARY ARTERY DISEASE
  10. ESOMEPRAZOLE MAGNESIUM [Concomitant]
     Indication: PROPHYLAXIS AGAINST GASTROINTESTINAL ULCER
  11. ZOPICLONE [Concomitant]
     Indication: SLEEP DISORDER
  12. MCP [Concomitant]
  13. FENTANYL [Concomitant]
     Indication: POLYMYALGIA RHEUMATICA
  14. VOLTAREN [Concomitant]
  15. MOLSIHEXAL [Concomitant]
     Indication: CORONARY ARTERY DISEASE
  16. DICLOFENAC SODIUM [Concomitant]

REACTIONS (7)
  - DISTURBANCE IN ATTENTION [None]
  - THOUGHT BLOCKING [None]
  - MENTAL IMPAIRMENT [None]
  - CONSTIPATION [None]
  - PERSONALITY CHANGE [None]
  - ANXIETY [None]
  - MALAISE [None]
